FAERS Safety Report 7640024-4 (Version None)
Quarter: 2011Q3

REPORT INFORMATION
  Report Type: 
  Country: None (occurrence: None)
  Receive Date: 20110727
  Receipt Date: 20110721
  Transmission Date: 20111222
  Serious: Yes (Other)
  Sender: FDA-Public Use
  Company Number: JP-MERCK-1107USA03316

PATIENT
  Age: 79 Year
  Sex: Male

DRUGS (1)
  1. PEPCID RPD [Suspect]
     Route: 048
     Dates: start: 20101001, end: 20110721

REACTIONS (1)
  - RENAL IMPAIRMENT [None]
